FAERS Safety Report 11815850 (Version 1)
Quarter: 2015Q4

REPORT INFORMATION
  Report Type: Spontaneous
  Country: US (occurrence: US)
  Receive Date: 20151209
  Receipt Date: 20151209
  Transmission Date: 20160305
  Serious: Yes (Other)
  Sender: FDA-Public Use
  Company Number: US-TEVA-616713USA

PATIENT
  Age: 11 Year
  Sex: Male

DRUGS (3)
  1. SODIUM CITRATE. [Suspect]
     Active Substance: SODIUM CITRATE
     Route: 065
  2. AZATHIOPRINE. [Suspect]
     Active Substance: AZATHIOPRINE
     Route: 065
  3. METRONIDAZOLE. [Suspect]
     Active Substance: METRONIDAZOLE
     Route: 042

REACTIONS (2)
  - Dermatitis [Unknown]
  - Bone marrow failure [Unknown]
